APPROVED DRUG PRODUCT: SPIRONOLACTONE AND HYDROCHLOROTHIAZIDE
Active Ingredient: HYDROCHLOROTHIAZIDE; SPIRONOLACTONE
Strength: 25MG;25MG
Dosage Form/Route: TABLET;ORAL
Application: A087999 | Product #001
Applicant: PUREPAC PHARMACEUTICAL CO
Approved: Nov 6, 1985 | RLD: No | RS: No | Type: DISCN